FAERS Safety Report 17017330 (Version 1)
Quarter: 2019Q4

REPORT INFORMATION
  Report Type: Spontaneous
  Country: US (occurrence: US)
  Receive Date: 20191111
  Receipt Date: 20191111
  Transmission Date: 20200122
  Serious: Yes (Death, Other)
  Sender: FDA-Public Use
  Company Number: US-MYLANLABS-2019M1107489

PATIENT
  Age: 3 Year
  Sex: Male

DRUGS (2)
  1. MELPHALAN. [Suspect]
     Active Substance: MELPHALAN
     Indication: NEUROBLASTOMA
     Dosage: UNK
  2. BUSULFAN. [Suspect]
     Active Substance: BUSULFAN
     Indication: NEUROBLASTOMA
     Dosage: UNK

REACTIONS (13)
  - Respiratory distress [Unknown]
  - Hepatic failure [Unknown]
  - Brain oedema [Unknown]
  - Encephalopathy [Unknown]
  - Mental status changes [Unknown]
  - Haemophagocytic lymphohistiocytosis [Unknown]
  - Hyperferritinaemia [Unknown]
  - Death [Fatal]
  - Venoocclusive liver disease [Unknown]
  - Pyrexia [Unknown]
  - Partial seizures [Unknown]
  - Prothrombin time prolonged [Unknown]
  - Hypofibrinogenaemia [Unknown]
